FAERS Safety Report 5809059-8 (Version None)
Quarter: 2008Q3

REPORT INFORMATION
  Report Type: 
  Country: None (occurrence: None)
  Receive Date: 20080711
  Receipt Date: 20080711
  Transmission Date: 20090109
  Serious: No
  Sender: FDA-Public Use
  Company Number: None

PATIENT
  Sex: Male
  Weight: 99.3377 kg

DRUGS (1)
  1. GLYBURIDE AND METFORMIN HCL [Suspect]
     Indication: TYPE 2 DIABETES MELLITUS
     Dosage: 5/500 TWICE BID PO RECORDS INDEFINITE, SOMETIME IN 2004, 2 TIMES
     Route: 048
     Dates: start: 20040101

REACTIONS (2)
  - NAUSEA [None]
  - VOMITING [None]
